FAERS Safety Report 9128532 (Version 3)
Quarter: 2013Q3

REPORT INFORMATION
  Report Type: Report from Study
  Country: DE (occurrence: DE)
  Receive Date: 20130228
  Receipt Date: 20130903
  Transmission Date: 20140515
  Serious: Yes (Hospitalization)
  Sender: FDA-Public Use
  Company Number: DE-ABBOTT-13P-062-1053866-00

PATIENT
  Age: 42 Year
  Sex: Male
  Weight: 85 kg

DRUGS (4)
  1. HUMIRA [Suspect]
     Indication: ANKYLOSING SPONDYLITIS
     Route: 058
     Dates: start: 20120614, end: 201302
  2. VALORON [Concomitant]
     Indication: ANKYLOSING SPONDYLITIS
     Dates: start: 201201
  3. CELEBREX [Concomitant]
     Indication: ANKYLOSING SPONDYLITIS
     Route: 048
     Dates: start: 200710, end: 201305
  4. CELEBREX [Concomitant]
     Dates: start: 201305

REACTIONS (4)
  - Peritonsillar abscess [Recovered/Resolved]
  - Acute tonsillitis [Recovered/Resolved]
  - Pustular psoriasis [Unknown]
  - Psoriasis [Not Recovered/Not Resolved]
